FAERS Safety Report 9558322 (Version 1)
Quarter: 2013Q3

REPORT INFORMATION
  Report Type: Spontaneous
  Country: VN (occurrence: VN)
  Receive Date: 20130926
  Receipt Date: 20130926
  Transmission Date: 20140515
  Serious: Yes (Death)
  Sender: FDA-Public Use
  Company Number: VN-BAXTER-2013BAX037190

PATIENT
  Age: 24 Year
  Sex: Male

DRUGS (1)
  1. DIANEAL LOW CALCIUM (2,5MEQ.L) PERITIONEAL DIALYSIS SOLUTION WITH 1.5% [Suspect]
     Indication: PERITONEAL DIALYSIS
     Dosage: 4 BAGS
     Route: 033
     Dates: start: 20120414, end: 20130525

REACTIONS (2)
  - Cardiac failure [Fatal]
  - Asthenia [Fatal]
